FAERS Safety Report 7045073-5 (Version None)
Quarter: 2010Q4

REPORT INFORMATION
  Report Type: 
  Country: None (occurrence: None)
  Receive Date: 20101014
  Receipt Date: 20101005
  Transmission Date: 20110411
  Serious: Yes (Hospitalization, Other)
  Sender: FDA-Public Use
  Company Number: FR-ABBOTT-10P-056-0676207-00

PATIENT
  Age: 28 Year
  Sex: Female

DRUGS (2)
  1. DEPAKENE [Suspect]
     Indication: EPILEPSY
     Route: 048
  2. OXCARBAZEPINE [Suspect]
     Indication: EPILEPSY
     Route: 048

REACTIONS (2)
  - ABORTION INDUCED [None]
  - OLIGOHYDRAMNIOS [None]
